FAERS Safety Report 7439506-X (Version None)
Quarter: 2011Q2

REPORT INFORMATION
  Report Type: 
  Country: None (occurrence: None)
  Receive Date: 20110427
  Receipt Date: 20110418
  Transmission Date: 20111010
  Serious: Yes (Hospitalization)
  Sender: FDA-Public Use
  Company Number: SE-AMGEN-SWESP2011020850

PATIENT
  Age: 72 Year
  Sex: Male

DRUGS (4)
  1. METOJECT                           /00113801/ [Concomitant]
     Dosage: 20 MG, WEEKLY
     Dates: start: 19880101
  2. PREDNISOLON                        /00016201/ [Concomitant]
     Dosage: 5 MG, 1X/DAY
  3. WARAN [Concomitant]
     Indication: ATRIAL FIBRILLATION
     Dosage: UNK
  4. ENBREL [Suspect]
     Indication: RHEUMATOID ARTHRITIS
     Dosage: 50 MG, WEEKLY
     Route: 058
     Dates: start: 20031120, end: 20101119

REACTIONS (2)
  - METASTASES TO LIVER [None]
  - PANCREATIC CARCINOMA METASTATIC [None]
